FAERS Safety Report 12177858 (Version 1)
Quarter: 2016Q1

REPORT INFORMATION
  Report Type: Spontaneous
  Country: US (occurrence: US)
  Receive Date: 20160315
  Receipt Date: 20160315
  Transmission Date: 20160526
  Serious: No
  Sender: FDA-Public Use
  Company Number: US-ASTRAZENECA-2016SE23605

PATIENT
  Sex: Male

DRUGS (1)
  1. TUDORZA PRESSAIR [Suspect]
     Active Substance: ACLIDINIUM BROMIDE
     Dosage: 400MCG 1 PUFF TWICE DAILY
     Route: 055
     Dates: start: 201602

REACTIONS (7)
  - Malaise [Unknown]
  - Incorrect dose administered [Unknown]
  - Product quality issue [Unknown]
  - Nervousness [Unknown]
  - Dyspnoea [Unknown]
  - Nasal congestion [Unknown]
  - Drug dose omission [Unknown]
